FAERS Safety Report 9721546 (Version 2)
Quarter: 2014Q1

REPORT INFORMATION
  Report Type: Report from Study
  Country: CA (occurrence: CA)
  Receive Date: 20131130
  Receipt Date: 20140117
  Transmission Date: 20141002
  Serious: Yes (Other)
  Sender: FDA-Public Use
  Company Number: PHHY2013CA138693

PATIENT
  Sex: Female

DRUGS (2)
  1. CLOZARIL [Suspect]
     Indication: SCHIZOPHRENIA
     Dosage: 25-50 MG
     Route: 048
     Dates: start: 20131120, end: 20131125
  2. ZYPREXA [Concomitant]
     Dosage: UNK UKN, UNK

REACTIONS (2)
  - Hallucination [Recovered/Resolved]
  - Sedation [Recovered/Resolved]
